FAERS Safety Report 16761587 (Version 2)
Quarter: 2019Q3

REPORT INFORMATION
  Report Type: Spontaneous
  Country: US (occurrence: US)
  Receive Date: 20190830
  Receipt Date: 20190923
  Transmission Date: 20191005
  Serious: No
  Sender: FDA-Public Use
  Company Number: US-SA-2019SA230449

PATIENT
  Age: 8 Year
  Sex: Female
  Weight: 22.68 kg

DRUGS (1)
  1. DUPIXENT [Suspect]
     Active Substance: DUPILUMAB
     Indication: ECZEMA
     Dosage: 100 MG, QOW
     Route: 058
     Dates: start: 20190703

REACTIONS (7)
  - Product use issue [Unknown]
  - Pruritus [Recovered/Resolved]
  - Eczema [Recovered/Resolved]
  - Pain [Recovered/Resolved]
  - Dry skin [Recovered/Resolved]
  - Burning sensation [Recovered/Resolved]
  - Condition aggravated [Recovered/Resolved]

NARRATIVE: CASE EVENT DATE: 20190507
